FAERS Safety Report 8553483-X (Version None)
Quarter: 2012Q3

REPORT INFORMATION
  Report Type: 
  Country: None (occurrence: None)
  Receive Date: 20120731
  Receipt Date: 20120725
  Transmission Date: 20120928
  Serious: Yes (Hospitalization, Other)
  Sender: FDA-Public Use
  Company Number: US-PFIZER INC-2012145080

PATIENT
  Sex: Male
  Weight: 84.354 kg

DRUGS (2)
  1. DILANTIN [Suspect]
     Dosage: UNK
     Route: 048
     Dates: start: 20100826, end: 20100826
  2. ZOLPIDEM [Concomitant]
     Indication: CARDIAC DISORDER
     Dosage: 10 MG, UNK

REACTIONS (9)
  - SKIN DISORDER [None]
  - MALAISE [None]
  - CEREBROVASCULAR ACCIDENT [None]
  - BURNING SENSATION [None]
  - PIGMENTATION DISORDER [None]
  - STEVENS-JOHNSON SYNDROME [None]
  - HAEMORRHAGE [None]
  - PAIN [None]
  - ASTHENIA [None]
